FAERS Safety Report 5235264-8 (Version None)
Quarter: 2007Q1

REPORT INFORMATION
  Report Type: 
  Country: None (occurrence: None)
  Receive Date: 20070212
  Receipt Date: 20070201
  Transmission Date: 20070707
  Serious: Yes (Hospitalization, Other)
  Sender: FDA-Public Use
  Company Number: US-JNJFOC-20060500189

PATIENT
  Sex: Female
  Weight: 53.52 kg

DRUGS (6)
  1. REMICADE [Suspect]
     Route: 042
  2. REMICADE [Suspect]
     Indication: CROHN'S DISEASE
     Route: 042
  3. ETODOLAC [Concomitant]
     Indication: ARTHRITIS
  4. CLONIDINE [Concomitant]
     Indication: BLOOD PRESSURE
  5. TOPROL-XL [Concomitant]
     Indication: BLOOD PRESSURE
  6. IMURAN [Concomitant]
     Indication: CROHN'S DISEASE

REACTIONS (3)
  - AMYOTROPHIC LATERAL SCLEROSIS [None]
  - DIARRHOEA [None]
  - URINARY TRACT INFECTION [None]
